FAERS Safety Report 4777514-8 (Version None)
Quarter: 2005Q3

REPORT INFORMATION
  Report Type: 
  Country: None (occurrence: None)
  Receive Date: 20050921
  Receipt Date: 20050914
  Transmission Date: 20060218
  Serious: Yes (Disabling, Other)
  Sender: FDA-Public Use
  Company Number: 200510575BNE

PATIENT
  Age: 48 Year
  Sex: Female

DRUGS (1)
  1. DACARBAZINE [Suspect]
     Indication: HODGKIN'S DISEASE
     Dosage: 620 MG, TOTAL DAILY, INTRAVENOUS DRIP
     Route: 041
     Dates: start: 20050525

REACTIONS (1)
  - PAIN IN EXTREMITY [None]
